FAERS Safety Report 5480695-4 (Version None)
Quarter: 2007Q4

REPORT INFORMATION
  Report Type: 
  Country: None (occurrence: None)
  Receive Date: 20071003
  Receipt Date: 20070917
  Transmission Date: 20080405
  Serious: Yes (Other)
  Sender: FDA-Public Use
  Company Number: ACO_00383_2007

PATIENT
  Age: 53 Year
  Sex: Female
  Weight: 81.6475 kg

DRUGS (10)
  1. ZANAFLEX [Suspect]
     Indication: FIBROMYALGIA
     Dosage: 4 MG Q3H ORAL, 8 MG Q3H ORAL
     Route: 048
     Dates: end: 20070101
  2. ZANAFLEX [Suspect]
     Indication: PAIN
     Dosage: 4 MG Q3H ORAL, 8 MG Q3H ORAL
     Route: 048
     Dates: end: 20070101
  3. ZANAFLEX [Suspect]
     Indication: FIBROMYALGIA
     Dosage: 4 MG Q3H ORAL, 8 MG Q3H ORAL
     Route: 048
     Dates: start: 20070101, end: 20070918
  4. ZANAFLEX [Suspect]
     Indication: PAIN
     Dosage: 4 MG Q3H ORAL, 8 MG Q3H ORAL
     Route: 048
     Dates: start: 20070101, end: 20070918
  5. CADIAN () [Concomitant]
  6. GLIMEPIRIDE [Concomitant]
  7. ROXICODONE [Concomitant]
  8. ACIPHEX [Concomitant]
  9. REGLAN /00041902/ () [Concomitant]
  10. METFORMIN [Concomitant]

REACTIONS (3)
  - CHILLS [None]
  - DRUG WITHDRAWAL SYNDROME [None]
  - HOT FLUSH [None]
